FAERS Safety Report 6202982-4 (Version None)
Quarter: 2009Q2

REPORT INFORMATION
  Report Type: 
  Country: None (occurrence: None)
  Receive Date: 20090520
  Receipt Date: 20090430
  Transmission Date: 20091009
  Serious: Yes (Other)
  Sender: FDA-Public Use
  Company Number: 2009EU001935

PATIENT
  Age: 16 Year

DRUGS (9)
  1. TACROLIMUS [Suspect]
     Indication: GRAFT VERSUS HOST DISEASE
  2. INFLIXIMAB(INFLIXIMAB) [Suspect]
     Indication: GRAFT VERSUS HOST DISEASE
  3. MYCOPHENOLIC ACID [Suspect]
     Indication: GRAFT VERSUS HOST DISEASE
  4. PREDNISOLONE [Suspect]
     Indication: GRAFT VERSUS HOST DISEASE
  5. BUSULFAN (BUSULFAN) [Concomitant]
  6. CYCLOSPORINE [Concomitant]
  7. CYCLOPHOSPHAMIDE [Concomitant]
  8. CO-TRIMOXAZOLE [Concomitant]
  9. ITRACONAZOLE [Concomitant]

REACTIONS (7)
  - BRONCHIECTASIS [None]
  - HYPERTENSION [None]
  - OSTEONECROSIS [None]
  - OSTEOPOROSIS [None]
  - RENAL IMPAIRMENT [None]
  - TREMOR [None]
  - UPPER RESPIRATORY TRACT INFECTION [None]
